FAERS Safety Report 4509479-8 (Version None)
Quarter: 2004Q4

REPORT INFORMATION
  Report Type: 
  Country: None (occurrence: None)
  Receive Date: 20041119
  Receipt Date: 20041102
  Transmission Date: 20050328
  Serious: Yes (Death)
  Sender: FDA-Public Use
  Company Number: USA041081880

PATIENT
  Age: 38 Year
  Sex: Male

DRUGS (4)
  1. CYMBALTA [Suspect]
     Indication: DEPRESSION
     Dosage: 60 MG
     Dates: start: 20040901
  2. ZOLOFT [Concomitant]
  3. ACTOS [Concomitant]
  4. VICODIN [Concomitant]

REACTIONS (1)
  - TREATMENT NONCOMPLIANCE [None]
